FAERS Safety Report 9515890 (Version 1)
Quarter: 2013Q1

REPORT INFORMATION
  Report Type: Spontaneous
  Country: US (occurrence: None)
  Receive Date: 20130305
  Receipt Date: 20130305
  Transmission Date: 20140127
  Serious: Yes (Hospitalization, Other)
  Sender: FDA-Public Use
  Company Number: 163-21880-12102793

PATIENT
  Age: 81 Year
  Sex: Male

DRUGS (11)
  1. REVLIMID (LENALIDOMIDE) (25 MILLIGRAM, CAPSULES) [Suspect]
     Indication: PLASMA CELL MYELOMA
     Route: 048
     Dates: start: 20120820, end: 201209
  2. RANITIDINE (RANITIDINE) [Concomitant]
  3. WARFARIN (WARFARIN) [Concomitant]
  4. CLOPIDOGREL (CLOPIDOGREL) [Concomitant]
  5. PRAVASTATIN (PRAVASTATIN) [Concomitant]
  6. INSULIN GLARGINE (INSULIN GLARGINE) [Concomitant]
  7. GLIPIZIDE (GLIPIZIDE) [Concomitant]
  8. DEXAMETHASONE (DEXAMETHASONE) [Concomitant]
  9. TRAMADOL (TRAMADOL) [Concomitant]
  10. METOPROLOL (METOPROLOL) [Concomitant]
  11. ZOLPIDEM (ZOLPIDEM) [Concomitant]

REACTIONS (1)
  - Renal failure chronic [None]
